FAERS Safety Report 7731971-3 (Version None)
Quarter: 2011Q3

REPORT INFORMATION
  Report Type: 
  Country: None (occurrence: None)
  Receive Date: 20110906
  Receipt Date: 20110720
  Transmission Date: 20111222
  Serious: No
  Sender: FDA-Public Use
  Company Number: US-AMGEN-USASP2011037102

PATIENT
  Sex: Male

DRUGS (12)
  1. LORAZEPAM [Concomitant]
     Dosage: 3 MG, QD
  2. VITAMIN D [Concomitant]
     Dosage: 3 IU, QD
  3. LORAZEPAM [Concomitant]
     Dosage: 1 MG, QD
  4. VESICARE [Concomitant]
     Dosage: 1 MG, QD
  5. ZANTAC [Concomitant]
     Dosage: 1 MG, Q12H
  6. PAXIL [Concomitant]
     Dosage: UNK UNK, QD
  7. TRICOR [Concomitant]
     Dosage: 1 MG, QD
  8. SIMVASTATIN [Concomitant]
     Dosage: UNK UNK, QD
  9. XGEVA [Suspect]
     Indication: METASTASES TO BONE
     Dosage: 120 MG, Q4WK
     Dates: start: 20110621
  10. TAMSULOSIN HCL [Concomitant]
     Dosage: UNK UNK, QD
  11. KETOCONAZOLE [Concomitant]
     Dosage: UNK UNK, Q12H
  12. NASONEX [Concomitant]
     Dosage: UNK UNK, QD

REACTIONS (1)
  - TOOTH ABSCESS [None]
